FAERS Safety Report 4617496-2 (Version None)
Quarter: 2005Q1

REPORT INFORMATION
  Report Type: 
  Country: None (occurrence: None)
  Receive Date: 20050324
  Receipt Date: 20050309
  Transmission Date: 20050727
  Serious: Yes (Other)
  Sender: FDA-Public Use
  Company Number: 200512361GDDC

PATIENT
  Age: 91 Year
  Sex: Male

DRUGS (3)
  1. ENOXAPARIN SODIUM [Suspect]
     Indication: CHEST PAIN
     Dosage: DOSE: UNK
  2. CLOPIDOGREL [Concomitant]
     Dosage: DOSE: UNK
  3. UNKNOWN DRUG [Concomitant]

REACTIONS (2)
  - HAEMORRHAGE [None]
  - SKIN NECROSIS [None]
